FAERS Safety Report 6674061-3 (Version None)
Quarter: 2010Q1

REPORT INFORMATION
  Report Type: 
  Country: None (occurrence: None)
  Receive Date: 20100329
  Receipt Date: 20100112
  Transmission Date: 20100710
  Serious: Yes (Other)
  Sender: FDA-Public Use
  Company Number: 2010004822

PATIENT
  Sex: Female
  Weight: 78.5 kg

DRUGS (7)
  1. GEODON [Suspect]
     Indication: BIPOLAR DISORDER
     Dosage: 20 MG, 2X/DAY
     Dates: end: 20100108
  2. GEODON [Suspect]
     Indication: BIPOLAR DISORDER
     Dosage: 20 MG, 2X/DAY
     Dates: start: 20091001
  3. LITHIUM CARBONATE [Suspect]
     Indication: BIPOLAR DISORDER
  4. RITALIN [Concomitant]
  5. LAMICTAL [Concomitant]
  6. TOPAMAX [Concomitant]
  7. KLONOPIN [Concomitant]

REACTIONS (4)
  - ANGER [None]
  - CRYING [None]
  - FEELING ABNORMAL [None]
  - WEIGHT INCREASED [None]
